FAERS Safety Report 9740062 (Version 2)
Quarter: 2014Q1

REPORT INFORMATION
  Report Type: Report from Study
  Country: US (occurrence: US)
  Receive Date: 20131209
  Receipt Date: 20140210
  Transmission Date: 20141002
  Serious: Yes (Hospitalization, Other)
  Sender: FDA-Public Use
  Company Number: US-ABBVIE-13P-163-1174617-00

PATIENT
  Age: 27 Year
  Sex: Female
  Weight: 110.4 kg

DRUGS (16)
  1. HUMIRA [Suspect]
     Indication: CROHN^S DISEASE
     Route: 058
     Dates: start: 201306
  2. ZANAFLEX [Concomitant]
     Indication: BACK PAIN
  3. ZANAFLEX [Concomitant]
     Indication: NECK PAIN
  4. LOMOTIL [Concomitant]
     Indication: DIARRHOEA
     Dosage: 2 TABS EVERY 6 HOURS AS NEEDED
  5. PROMETHAZINE WITH CODEINE [Concomitant]
     Indication: ABDOMINAL PAIN UPPER
     Dosage: 1 TSP EVERY 6 HOURS AS NEEDED
  6. PROMETHAZINE [Concomitant]
     Indication: NAUSEA
     Dosage: 1 TAB EVERY 6 HOURS AS NEEDED
  7. VITAMIN B12 [Concomitant]
     Indication: PRODUCT USED FOR UNKNOWN INDICATION
  8. AMBIEN [Concomitant]
     Indication: INSOMNIA
     Dosage: AT BEDTIME AS NEEDED
  9. GENTLE IRON [Concomitant]
     Indication: PRODUCT USED FOR UNKNOWN INDICATION
     Dosage: 1 TO 3 TABS DAILY
  10. MULTIVITAMIN [Concomitant]
     Indication: PRODUCT USED FOR UNKNOWN INDICATION
  11. PREDNISONE [Concomitant]
     Indication: PRODUCT USED FOR UNKNOWN INDICATION
     Dosage: DECREASED 7.5 MG TO 5 MG DAILY
  12. NEXIUM [Concomitant]
     Indication: GASTROOESOPHAGEAL REFLUX DISEASE
     Route: 048
  13. NEXIUM [Concomitant]
     Route: 048
  14. NEXIUM [Concomitant]
     Dosage: DECREASED
     Dates: end: 201309
  15. NEXIUM [Concomitant]
     Dates: start: 201309
  16. VITAMIN D [Concomitant]
     Indication: PRODUCT USED FOR UNKNOWN INDICATION
     Dates: end: 201311

REACTIONS (6)
  - Urinary tract obstruction [Not Recovered/Not Resolved]
  - Injection site swelling [Not Recovered/Not Resolved]
  - Injection site erythema [Not Recovered/Not Resolved]
  - Injection site pain [Recovered/Resolved]
  - Gastrooesophageal reflux disease [Unknown]
  - Injection site pruritus [Not Recovered/Not Resolved]
